FAERS Safety Report 7769983-6 (Version None)
Quarter: 2011Q3

REPORT INFORMATION
  Report Type: 
  Country: None (occurrence: None)
  Receive Date: 20110922
  Receipt Date: 20100802
  Transmission Date: 20111222
  Serious: Yes (Other)
  Sender: FDA-Public Use
  Company Number: US-ASTRAZENECA-2006UW22516

PATIENT
  Age: 17562 Day
  Sex: Female
  Weight: 74.8 kg

DRUGS (26)
  1. HALDOL [Concomitant]
  2. NADOLOL [Concomitant]
     Route: 048
     Dates: start: 20071130
  3. SEROQUEL [Suspect]
     Indication: DEPRESSION
     Route: 048
     Dates: start: 19970101
  4. SEROQUEL [Suspect]
     Indication: ANXIETY
     Route: 048
     Dates: start: 19970101
  5. NAVANE [Concomitant]
     Dosage: 2 TABLETS IN THE MORNING AND 2 TABLETS AT NIGHT
     Route: 048
     Dates: start: 19820524
  6. METFORMIN [Concomitant]
     Route: 048
     Dates: start: 20060227
  7. LORAZEPAM [Concomitant]
     Route: 048
     Dates: start: 20071130
  8. NORPRAMIN [Concomitant]
     Dosage: STRENGTH - 25 MG, 50 MG, DOSE - 25 - 100 MG DAILY
     Route: 048
     Dates: start: 19880419
  9. ASPIRIN [Concomitant]
     Route: 048
     Dates: start: 20071130
  10. MIDAZOLAM HCL [Concomitant]
     Dosage: 1 MG/ML
     Dates: start: 20011024
  11. RISPERDAL [Concomitant]
  12. THORAZINE [Concomitant]
     Route: 048
     Dates: start: 19840202
  13. SEROQUEL [Suspect]
     Route: 048
     Dates: start: 20001004
  14. SEROQUEL [Suspect]
     Indication: SCHIZOPHRENIA
     Route: 048
     Dates: start: 19970101
  15. SEROQUEL [Suspect]
     Route: 048
     Dates: start: 20001004
  16. COGENTIN [Concomitant]
     Route: 048
     Dates: start: 19820524
  17. DARVOCET-N 50 [Concomitant]
     Route: 048
     Dates: start: 20071130
  18. HALCION [Concomitant]
     Indication: SLEEP DISORDER
     Route: 048
     Dates: start: 19870921
  19. SEROQUEL [Suspect]
     Route: 048
     Dates: start: 20001004
  20. PREDNISONE [Concomitant]
     Route: 048
     Dates: start: 20011024
  21. DIAZEPAM [Concomitant]
     Dosage: STRENGTH - 5 MG, 10 MG, DOSE - 10 - 30 MG DAILY
     Route: 048
     Dates: start: 19880317
  22. FENTANYL CITRATE [Concomitant]
     Route: 048
     Dates: start: 20011024
  23. HALDOL [Concomitant]
     Dosage: STRENGTH - 5 MG, 10 MG, DOSE - 5 - 20 MG DAILY
     Route: 048
     Dates: start: 19840202
  24. STELAZINE [Concomitant]
  25. AVANDIA [Concomitant]
     Route: 048
     Dates: start: 20060227
  26. ARTANE [Concomitant]
     Route: 048
     Dates: start: 19880317

REACTIONS (2)
  - TARDIVE DYSKINESIA [None]
  - TYPE 2 DIABETES MELLITUS [None]
